FAERS Safety Report 6934050-8 (Version None)
Quarter: 2010Q3

REPORT INFORMATION
  Report Type: 
  Country: None (occurrence: None)
  Receive Date: 20100820
  Receipt Date: 20100809
  Transmission Date: 20110219
  Serious: Yes (Hospitalization)
  Sender: FDA-Public Use
  Company Number: JP-SANOFI-AVENTIS-A01200908254

PATIENT
  Sex: Male
  Weight: 70 kg

DRUGS (4)
  1. CLOPIDOGREL BISULFATE [Suspect]
     Route: 048
     Dates: start: 20080401, end: 20081101
  2. PANALDINE [Suspect]
     Route: 065
     Dates: start: 20081101, end: 20090316
  3. ASPIRIN [Concomitant]
     Indication: PRODUCT USED FOR UNKNOWN INDICATION
  4. VALSARTAN [Concomitant]
     Indication: PRODUCT USED FOR UNKNOWN INDICATION

REACTIONS (2)
  - HYPERSENSITIVITY [None]
  - ORGANISING PNEUMONIA [None]
